FAERS Safety Report 14350940 (Version 5)
Quarter: 2018Q2

REPORT INFORMATION
  Report Type: Spontaneous
  Country: FR (occurrence: FR)
  Receive Date: 20180104
  Receipt Date: 20180413
  Transmission Date: 20180711
  Serious: Yes (Other)
  Sender: FDA-Public Use
  Company Number: FR-PFIZER INC-2017552595

PATIENT
  Age: 14 Year
  Sex: Male
  Weight: 58 kg

DRUGS (3)
  1. PROPOFOL. [Concomitant]
     Active Substance: PROPOFOL
     Indication: APPENDICECTOMY
     Dosage: 240 MG, 1X/DAY
     Route: 042
     Dates: start: 20171022, end: 20171022
  2. CELOCURINE [Suspect]
     Active Substance: SUCCINYLCHOLINE CHLORIDE
     Indication: APPENDICECTOMY
     Dosage: 60 MG, 1X/DAY
     Route: 042
     Dates: start: 20171022, end: 20171022
  3. ATRACURIUM BESILATE [Suspect]
     Active Substance: ATRACURIUM BESYLATE
     Indication: APPENDICECTOMY
     Dosage: 25 MG, 1X/DAY
     Route: 042
     Dates: start: 20171022, end: 20171022

REACTIONS (1)
  - Drug effect increased [Recovered/Resolved]

NARRATIVE: CASE EVENT DATE: 20171022
